FAERS Safety Report 7545296-2 (Version None)
Quarter: 2011Q2

REPORT INFORMATION
  Report Type: 
  Country: None (occurrence: None)
  Receive Date: 20110614
  Receipt Date: 20110603
  Transmission Date: 20111010
  Serious: Yes (Hospitalization)
  Sender: FDA-Public Use
  Company Number: IE-NOVOPROD-326827

PATIENT
  Age: 60 Year
  Sex: Female
  Weight: 108 kg

DRUGS (1)
  1. VICTOZA [Suspect]
     Indication: TYPE 2 DIABETES MELLITUS
     Dosage: 1.8 MG, QD
     Route: 065
     Dates: start: 20100825, end: 20110412

REACTIONS (1)
  - PNEUMONIA [None]
